FAERS Safety Report 8035827-0 (Version None)
Quarter: 2012Q1

REPORT INFORMATION
  Report Type: 
  Country: None (occurrence: None)
  Receive Date: 20120105
  Receipt Date: 20111219
  Transmission Date: 20120608
  Serious: Yes (Other)
  Sender: FDA-Public Use
  Company Number: 7102333

PATIENT
  Age: 71 Year
  Sex: Female

DRUGS (1)
  1. LEVOTHYROXINE SODIUM [Suspect]
     Indication: MYXOEDEMA
     Route: 048
     Dates: start: 19750401

REACTIONS (3)
  - FATIGUE [None]
  - BACK PAIN [None]
  - AMNESIA [None]
